FAERS Safety Report 22017781 (Version 1)
Quarter: 2023Q1

REPORT INFORMATION
  Report Type: Report from Study
  Country: US (occurrence: US)
  Receive Date: 20230221
  Receipt Date: 20230221
  Transmission Date: 20230417
  Serious: No
  Sender: FDA-Public Use
  Company Number: US-Ipsen Biopharmaceuticals, Inc.-2023-02822

PATIENT
  Age: 42 Year
  Sex: Female

DRUGS (1)
  1. SOMATULINE DEPOT [Suspect]
     Active Substance: LANREOTIDE ACETATE
     Indication: Carcinoid syndrome
     Dosage: 120MG/0.5MG, EVERY 28 DAYS
     Route: 058
     Dates: start: 201911

REACTIONS (4)
  - Diarrhoea [Unknown]
  - Therapeutic response shortened [Recovering/Resolving]
  - Blood chromogranin A [Recovering/Resolving]
  - Unevaluable event [Unknown]
